FAERS Safety Report 11982407 (Version 1)
Quarter: 2016Q1

REPORT INFORMATION
  Report Type: Spontaneous
  Country: US (occurrence: US)
  Receive Date: 20160201
  Receipt Date: 20160201
  Transmission Date: 20160526
  Serious: No
  Sender: FDA-Public Use
  Company Number: US-009507513-1601USA011733

PATIENT
  Age: 62 Year
  Sex: Male

DRUGS (1)
  1. BELSOMRA [Suspect]
     Active Substance: SUVOREXANT
     Indication: INSOMNIA
     Dosage: 10 MG, QD (ONCE A NIGHT)
     Route: 048
     Dates: start: 20160122, end: 20160125

REACTIONS (2)
  - Drug ineffective [Recovered/Resolved]
  - Hangover [Recovered/Resolved]

NARRATIVE: CASE EVENT DATE: 20160123
